FAERS Safety Report 7374885-3 (Version None)
Quarter: 2011Q1

REPORT INFORMATION
  Report Type: 
  Country: None (occurrence: None)
  Receive Date: 20110325
  Receipt Date: 20110228
  Transmission Date: 20110831
  Serious: No
  Sender: FDA-Public Use
  Company Number: US-B.I. PHARMACEUTICALS,INC./RIDGEFIELD-2011-BP-05680BP

PATIENT
  Sex: Female

DRUGS (10)
  1. ZYRTEC [Concomitant]
     Indication: MULTIPLE ALLERGIES
     Route: 048
  2. PATADAY DROPS [Concomitant]
     Indication: MULTIPLE ALLERGIES
     Route: 061
  3. CALCIUM [Concomitant]
     Indication: SUPPLEMENTATION THERAPY
     Dosage: 1200 MG
     Route: 048
  4. ONE-A-DAY [Concomitant]
     Indication: SUPPLEMENTATION THERAPY
  5. PRADAXA [Suspect]
     Indication: ATRIAL FIBRILLATION
     Dosage: 300 MG
     Route: 048
     Dates: start: 20110223
  6. METOPROLOL [Concomitant]
     Indication: ATRIAL FIBRILLATION
     Dosage: 50 MG
     Route: 048
     Dates: start: 20101101
  7. FOSAMAX [Concomitant]
     Indication: OSTEOPOROSIS
     Route: 048
     Dates: start: 19950101
  8. CITALOPRAM HYDROBROMIDE [Concomitant]
     Indication: ANXIETY
     Dosage: 20 MG
     Route: 048
     Dates: start: 20080101
  9. VIT D [Concomitant]
     Indication: SUPPLEMENTATION THERAPY
     Dosage: 1000 MG
     Route: 048
  10. PROAIR HFA [Concomitant]
     Indication: DYSPNOEA
     Route: 055
     Dates: start: 20110201

REACTIONS (2)
  - HOT FLUSH [None]
  - DIZZINESS [None]
